APPROVED DRUG PRODUCT: CEFACLOR
Active Ingredient: CEFACLOR
Strength: EQ 375MG BASE
Dosage Form/Route: TABLET, EXTENDED RELEASE;ORAL
Application: A065058 | Product #001
Applicant: TEVA PHARMACEUTICALS USA INC
Approved: Sep 4, 2002 | RLD: No | RS: No | Type: RX